FAERS Safety Report 24410181 (Version 1)
Quarter: 2024Q4

REPORT INFORMATION
  Report Type: Spontaneous
  Country: IT (occurrence: IT)
  Receive Date: 20241008
  Receipt Date: 20241008
  Transmission Date: 20250114
  Serious: Yes (Hospitalization)
  Sender: AUROBINDO
  Company Number: IT-MINISAL02-1003949

PATIENT
  Sex: Female

DRUGS (2)
  1. QUETIAPINE [Suspect]
     Active Substance: QUETIAPINE
     Indication: Mental disorder
     Dosage: 200 MILLIGRAM, ONCE A DAY
     Route: 048
     Dates: start: 20240914
  2. ZOLPIDEM TARTRATE [Suspect]
     Active Substance: ZOLPIDEM TARTRATE
     Indication: Sleep disorder
     Dosage: 2 DOSAGE FORM
     Route: 048
     Dates: start: 20240914, end: 20240914

REACTIONS (3)
  - Sopor [Recovered/Resolved]
  - Accidental overdose [Recovered/Resolved]
  - Incorrect dose administered [Recovered/Resolved]

NARRATIVE: CASE EVENT DATE: 20240914
